FAERS Safety Report 5026660-2 (Version None)
Quarter: 2006Q2

REPORT INFORMATION
  Report Type: 
  Country: None (occurrence: None)
  Receive Date: 20060615
  Receipt Date: 20060517
  Transmission Date: 20061013
  Serious: Yes (Death, Congenital Anomaly)
  Sender: FDA-Public Use
  Company Number: PL-GLAXOSMITHKLINE-B0421605B

PATIENT

DRUGS (1)
  1. ZENTEL [Suspect]
     Dosage: 400MG PER DAY
     Route: 048
     Dates: start: 20060314, end: 20060314

REACTIONS (3)
  - CONGENITAL ANOMALY [None]
  - INFLAMMATION [None]
  - NECROSIS [None]
